FAERS Safety Report 16817178 (Version 1)
Quarter: 2019Q3

REPORT INFORMATION
  Report Type: Spontaneous
  Country: AU (occurrence: AU)
  Receive Date: 20190917
  Receipt Date: 20190917
  Transmission Date: 20191005
  Serious: Yes (Death, Other)
  Sender: FDA-Public Use
  Company Number: AU-TASMAN PHARMA, INC.-2019TSM00099

PATIENT
  Sex: Male

DRUGS (1)
  1. VERSACLOZ [Suspect]
     Active Substance: CLOZAPINE
     Dosage: UNK
     Dates: start: 20181112

REACTIONS (10)
  - Hospice care [Fatal]
  - Post procedural haemorrhage [Unknown]
  - Muscular weakness [Unknown]
  - Tachycardia [Unknown]
  - Pallor [Unknown]
  - Gait disturbance [Unknown]
  - Swelling [Unknown]
  - Cough [Unknown]
  - Oesophageal dilatation [Unknown]
  - Malignant neoplasm of unknown primary site [Unknown]

NARRATIVE: CASE EVENT DATE: 20190822
